FAERS Safety Report 25157045 (Version 2)
Quarter: 2025Q2

REPORT INFORMATION
  Report Type: Spontaneous
  Country: JP (occurrence: JP)
  Receive Date: 20250403
  Receipt Date: 20250523
  Transmission Date: 20250717
  Serious: Yes (Hospitalization, Other)
  Sender: MERCK SHARP & DOHME LLC
  Company Number: JP-009507513-2270384

PATIENT
  Age: 35 Year
  Sex: Female

DRUGS (1)
  1. CASPOFUNGIN ACETATE [Suspect]
     Active Substance: CASPOFUNGIN ACETATE
     Indication: Antifungal prophylaxis

REACTIONS (2)
  - Disseminated trichosporonosis [Recovered/Resolved]
  - Septic rash [Recovered/Resolved]
